FAERS Safety Report 4450014-0 (Version None)
Quarter: 2004Q3

REPORT INFORMATION
  Report Type: 
  Country: None (occurrence: None)
  Receive Date: 20040915
  Receipt Date: 20040909
  Transmission Date: 20050211
  Serious: Yes (Death, Other)
  Sender: FDA-Public Use
  Company Number: PHBS2004US12017

PATIENT
  Age: 42 Year
  Sex: Male

DRUGS (6)
  1. IMATINIB [Suspect]
     Indication: CHRONIC MYELOID LEUKAEMIA
     Dosage: 400 MG/DAY
     Route: 065
  2. IMATINIB [Suspect]
     Dosage: 600 MG/DAY
     Route: 065
  3. IDARUBICIN HCL [Concomitant]
  4. CYTARABINE [Concomitant]
  5. MITOXANTRONE [Concomitant]
  6. ETOPOSIDE [Concomitant]

REACTIONS (7)
  - BLAST CRISIS IN MYELOGENOUS LEUKAEMIA [None]
  - CHROMOSOME ANALYSIS ABNORMAL [None]
  - DEATH [None]
  - DISEASE PROGRESSION [None]
  - LEUKOCYTOSIS [None]
  - PYREXIA [None]
  - RESPIRATORY FAILURE [None]
